FAERS Safety Report 12722549 (Version 1)
Quarter: 2016Q3

REPORT INFORMATION
  Report Type: Other
  Country: US (occurrence: US)
  Receive Date: 20160907
  Receipt Date: 20160907
  Transmission Date: 20161109
  Serious: No
  Sender: FDA-Public Use
  Company Number: US-COL_21633_2015

PATIENT
  Sex: Female

DRUGS (1)
  1. COLGATE TOTAL WHITENING [Suspect]
     Active Substance: SODIUM FLUORIDE\TRICLOSAN
     Indication: PRODUCT USED FOR UNKNOWN INDICATION
     Dosage: A LITTLE BIT ON HER GUMS/ONCE/
     Route: 048
     Dates: start: 20151217, end: 20151217

REACTIONS (3)
  - Drug effect increased [None]
  - Product quality issue [Unknown]
  - Tongue discomfort [Recovering/Resolving]

NARRATIVE: CASE EVENT DATE: 20151217
